FAERS Safety Report 8504275-9 (Version None)
Quarter: 2012Q3

REPORT INFORMATION
  Report Type: 
  Country: None (occurrence: None)
  Receive Date: 20120711
  Receipt Date: 20120323
  Transmission Date: 20120928
  Serious: Yes (Other)
  Sender: FDA-Public Use
  Company Number: PHHY2012DE027567

PATIENT
  Age: 39 Year
  Sex: Female

DRUGS (2)
  1. SANDOSTATIN LAR [Interacting]
     Dosage: 10 MG, UNK
     Route: 030
  2. OMEPRAZOLE [Suspect]

REACTIONS (3)
  - BRADYCARDIA [None]
  - DRUG INTERACTION [None]
  - DYSSTASIA [None]
